FAERS Safety Report 18484739 (Version 1)
Quarter: 2020Q4

REPORT INFORMATION
  Report Type: Spontaneous
  Country: CA (occurrence: CA)
  Receive Date: 20201110
  Receipt Date: 20201110
  Transmission Date: 20210114
  Serious: Yes (Hospitalization, Other)
  Sender: FDA-Public Use
  Company Number: CA-GLAXOSMITHKLINE-CA2020GSK221966

PATIENT
  Sex: Female

DRUGS (1)
  1. AVANDIA [Suspect]
     Active Substance: ROSIGLITAZONE MALEATE
     Indication: DIABETES MELLITUS
     Dosage: UNK
     Route: 048
     Dates: start: 20050826, end: 20060324

REACTIONS (11)
  - Myocardial infarction [Unknown]
  - Coronary artery bypass [Unknown]
  - Ischaemic cardiomyopathy [Unknown]
  - Angiocardiogram [Unknown]
  - Cardiac failure congestive [Unknown]
  - Angina pectoris [Unknown]
  - Cardiac ventriculogram left [Unknown]
  - Left ventricular dysfunction [Unknown]
  - Catheterisation cardiac [Unknown]
  - Coronary artery disease [Unknown]
  - Cardiac disorder [Unknown]
